FAERS Safety Report 11753748 (Version 2)
Quarter: 2016Q1

REPORT INFORMATION
  Report Type: Spontaneous
  Country: US (occurrence: US)
  Receive Date: 20151119
  Receipt Date: 20160108
  Transmission Date: 20160525
  Serious: No
  Sender: FDA-Public Use
  Company Number: US-PFIZER INC-2015388569

PATIENT
  Age: 56 Year
  Sex: Male
  Weight: 89.3 kg

DRUGS (1)
  1. ELELYSO [Suspect]
     Active Substance: TALIGLUCERASE ALFA
     Indication: GAUCHER^S DISEASE
     Dosage: 5400 UNITS, EVERY 2 WEEKS
     Route: 042
     Dates: start: 20130126, end: 20151130

REACTIONS (5)
  - Headache [Unknown]
  - Influenza like illness [Unknown]
  - Chills [Unknown]
  - Infusion related reaction [Unknown]
  - Pyrexia [Unknown]

NARRATIVE: CASE EVENT DATE: 2013
